FAERS Safety Report 5441622-9 (Version None)
Quarter: 2007Q3

REPORT INFORMATION
  Report Type: 
  Country: None (occurrence: None)
  Receive Date: 20070829
  Receipt Date: 20070813
  Transmission Date: 20080115
  Serious: Yes (Hospitalization)
  Sender: FDA-Public Use
  Company Number: 2007EU000995

PATIENT
  Age: 31 Year
  Sex: Male
  Weight: 63 kg

DRUGS (14)
  1. TACROLIMUS [Suspect]
     Indication: RENAL TRANSPLANT
     Dosage: 5 MG, /D, ORAL ; /D, ORAL ; /D ; 0.5 MG, UID/QD, ORAL ; 1 MG, UID/QD, ORAL
     Route: 048
     Dates: start: 20060901, end: 20070410
  2. TACROLIMUS [Suspect]
     Indication: RENAL TRANSPLANT
     Dosage: 5 MG, /D, ORAL ; /D, ORAL ; /D ; 0.5 MG, UID/QD, ORAL ; 1 MG, UID/QD, ORAL
     Route: 048
     Dates: start: 20070411, end: 20070411
  3. TACROLIMUS [Suspect]
     Indication: RENAL TRANSPLANT
     Dosage: 5 MG, /D, ORAL ; /D, ORAL ; /D ; 0.5 MG, UID/QD, ORAL ; 1 MG, UID/QD, ORAL
     Route: 048
     Dates: start: 20070412, end: 20070508
  4. TACROLIMUS [Suspect]
     Indication: RENAL TRANSPLANT
     Dosage: 5 MG, /D, ORAL ; /D, ORAL ; /D ; 0.5 MG, UID/QD, ORAL ; 1 MG, UID/QD, ORAL
     Route: 048
     Dates: start: 20070509, end: 20070514
  5. TACROLIMUS [Suspect]
     Indication: RENAL TRANSPLANT
     Dosage: 5 MG, /D, ORAL ; /D, ORAL ; /D ; 0.5 MG, UID/QD, ORAL ; 1 MG, UID/QD, ORAL
     Route: 048
     Dates: start: 20070515
  6. KALETRA [Suspect]
     Indication: HIV INFECTION
     Dosage: 3 DF, BID, ORAL
     Route: 048
     Dates: start: 20060919
  7. CELLCEPT [Concomitant]
  8. CORTANCYL (PREDNISONE) [Concomitant]
  9. EPIVIR [Concomitant]
  10. VIDEX [Concomitant]
  11. BACTRIM (TRIMETHOPRIM) [Concomitant]
  12. METHADONE HCL [Concomitant]
  13. EUPRESSYL (URAPIDIL) [Concomitant]
  14. RAMIPRIL [Concomitant]

REACTIONS (4)
  - ACCIDENTAL OVERDOSE [None]
  - ANURIA [None]
  - CONFUSIONAL STATE [None]
  - MEDICATION ERROR [None]
